FAERS Safety Report 24601619 (Version 4)
Quarter: 2024Q4

REPORT INFORMATION
  Report Type: Spontaneous
  Country: US (occurrence: US)
  Receive Date: 20241111
  Receipt Date: 20241216
  Transmission Date: 20250114
  Serious: No
  Sender: SANDOZ
  Company Number: US-SANDOZ-SDZ2024US093353

PATIENT
  Age: 42 Year
  Sex: Female
  Weight: 55.78 kg

DRUGS (2)
  1. COMBIPATCH [Suspect]
     Active Substance: ESTRADIOL\NORETHINDRONE ACETATE
     Indication: Menopausal symptoms
     Dosage: 0.05/0.25 MG, ON MONDAYS AND THURSDAYS
     Route: 062
     Dates: start: 202405
  2. COMBIPATCH [Suspect]
     Active Substance: ESTRADIOL\NORETHINDRONE ACETATE
     Dosage: 0.05/0.25 MG, ON MONDAYS AND THURSDAYS
     Route: 062
     Dates: start: 202405

REACTIONS (24)
  - Dysmenorrhoea [Recovered/Resolved]
  - Application site urticaria [Not Recovered/Not Resolved]
  - Throat irritation [Recovered/Resolved]
  - Postmenopausal haemorrhage [Recovered/Resolved]
  - Throat irritation [Not Recovered/Not Resolved]
  - Application site hypersensitivity [Not Recovered/Not Resolved]
  - Application site discolouration [Not Recovered/Not Resolved]
  - Cough [Recovered/Resolved]
  - Cough [Not Recovered/Not Resolved]
  - Chills [Recovered/Resolved]
  - Chills [Not Recovered/Not Resolved]
  - Application site irritation [Recovering/Resolving]
  - Application site erythema [Recovering/Resolving]
  - Application site rash [Not Recovered/Not Resolved]
  - Application site swelling [Not Recovered/Not Resolved]
  - Application site pruritus [Not Recovered/Not Resolved]
  - Application site pain [Not Recovered/Not Resolved]
  - Pain [Recovered/Resolved]
  - Pain [Not Recovered/Not Resolved]
  - Bronchitis [Recovered/Resolved]
  - Therapeutic product ineffective [Recovered/Resolved]
  - Product adhesion issue [Recovered/Resolved]
  - Product physical issue [Not Recovered/Not Resolved]
  - Product administration error [Not Recovered/Not Resolved]

NARRATIVE: CASE EVENT DATE: 20240701
